FAERS Safety Report 17089210 (Version 2)
Quarter: 2020Q1

REPORT INFORMATION
  Report Type: Report from Study
  Country: US (occurrence: US)
  Receive Date: 20191128
  Receipt Date: 20200124
  Transmission Date: 20200409
  Serious: Yes (Hospitalization, Other)
  Sender: FDA-Public Use
  Company Number: US-ASPEN-GLO2019US012455

PATIENT
  Age: 4 Year
  Sex: Male
  Weight: 15.7 kg

DRUGS (47)
  1. CYCLOPHOSPHAMIDE. [Suspect]
     Active Substance: CYCLOPHOSPHAMIDE
     Dosage: 620 MG, SINGLE
     Route: 042
     Dates: start: 20190430, end: 20190430
  2. PEGASPARGASE [Suspect]
     Active Substance: PEGASPARGASE
     Dosage: 1550 IU, SINGLE
     Route: 042
     Dates: start: 20190514, end: 20190514
  3. MELATONIN [Concomitant]
     Active Substance: MELATONIN
     Indication: PRODUCT USED FOR UNKNOWN INDICATION
     Dosage: UNK
     Route: 065
     Dates: start: 20190924
  4. CYTARABINE. [Suspect]
     Active Substance: CYTARABINE
     Dosage: 53 MG, QD
     Route: 042
     Dates: start: 20191014, end: 20191017
  5. CYTARABINE. [Suspect]
     Active Substance: CYTARABINE
     Dosage: 45 MG, QD
     Route: 042
     Dates: start: 20190528, end: 20190531
  6. VINCRISTINE [Suspect]
     Active Substance: VINCRISTINE
     Dosage: 1MG
     Route: 042
     Dates: start: 20190705, end: 20190920
  7. VINCRISTINE [Suspect]
     Active Substance: VINCRISTINE
     Dosage: 0.95 MG, ONCE (EACH DOSE FOR 4 DOSES);
     Route: 042
     Dates: start: 20190514, end: 20190618
  8. DOXORUBICIN [Suspect]
     Active Substance: DOXORUBICIN
     Indication: ACUTE LYMPHOCYTIC LEUKAEMIA
     Dosage: 17 MG,
     Route: 042
     Dates: start: 20190920
  9. METHOTREXATE. [Suspect]
     Active Substance: METHOTREXATE
     Dosage: 3250 MG, SINGLE
     Route: 042
     Dates: start: 20190705, end: 20190705
  10. MERCAPTOPURINE. [Suspect]
     Active Substance: MERCAPTOPURINE
     Dosage: 36 MG, QD
     Route: 048
     Dates: start: 20190528, end: 20190610
  11. TIOGUANINE [Suspect]
     Active Substance: THIOGUANINE ANHYDROUS
     Indication: ACUTE LYMPHOCYTIC LEUKAEMIA
     Dosage: 40 MG, QD
     Route: 048
     Dates: start: 20191014
  12. RUXOLITINIB [Suspect]
     Active Substance: RUXOLITINIB
     Dosage: 30 MG, BID, INTERIM MAINTENANCE: 14 DAYS ON 14 DAYS OFF
     Route: 048
     Dates: start: 20190705, end: 20190815
  13. RUXOLITINIB [Suspect]
     Active Substance: RUXOLITINIB
     Dosage: 30 MG, BID, (CONSOLIDATION: 14 DAYS ON14 DAYS OFF
     Route: 048
     Dates: start: 20190430, end: 20190610
  14. CYTARABINE. [Suspect]
     Active Substance: CYTARABINE
     Dosage: 45 MG, QD
     Route: 042
     Dates: start: 20190604, end: 20190606
  15. METHOTREXATE. [Suspect]
     Active Substance: METHOTREXATE
     Indication: ACUTE LYMPHOCYTIC LEUKAEMIA
     Dosage: 3250 MG
     Route: 042
     Dates: start: 20190816
  16. METHOTREXATE. [Suspect]
     Active Substance: METHOTREXATE
     Dosage: 12 MG, SINGLE
     Route: 037
     Dates: start: 20191021
  17. METHOTREXATE. [Suspect]
     Active Substance: METHOTREXATE
     Dosage: 12 MG, SINGLE
     Route: 037
     Dates: start: 20191014, end: 20191014
  18. CYCLOPHOSPHAMIDE. [Suspect]
     Active Substance: CYCLOPHOSPHAMIDE
     Indication: ACUTE LYMPHOCYTIC LEUKAEMIA
     Dosage: 710 MG
     Route: 042
     Dates: start: 20191014
  19. RUXOLITINIB [Suspect]
     Active Substance: RUXOLITINIB
     Dosage: 30 MG, BID, DELAYED INTENSIFICATION: 14 DAYS ON14 DAYS OFF);
     Route: 048
     Dates: start: 20190906, end: 20190919
  20. CYTARABINE. [Suspect]
     Active Substance: CYTARABINE
     Dosage: 53 MG, QD
     Route: 042
     Dates: start: 20191021
  21. CYTARABINE. [Suspect]
     Active Substance: CYTARABINE
     Dosage: 45 MG, QD
     Route: 042
     Dates: start: 20190430, end: 20190503
  22. METHOTREXATE. [Suspect]
     Active Substance: METHOTREXATE
     Dosage: 3250 MG, SINGLE
     Route: 042
     Dates: start: 20190719, end: 20190719
  23. METHOTREXATE. [Suspect]
     Active Substance: METHOTREXATE
     Dosage: 12 MG, SINGLE
     Route: 037
     Dates: start: 20190507, end: 20190507
  24. PEGASPARGASE [Suspect]
     Active Substance: PEGASPARGASE
     Dosage: 1550 IU, SINGLE
     Route: 042
     Dates: start: 20190611, end: 20190611
  25. DECADRON [Suspect]
     Active Substance: DEXAMETHASONE
     Indication: ACUTE LYMPHOCYTIC LEUKAEMIA
     Dosage: 3.5 MG, X 7 DAYS
     Route: 048
     Dates: start: 20190920
  26. MERCAPTOPURINE. [Suspect]
     Active Substance: MERCAPTOPURINE
     Indication: ACUTE LYMPHOCYTIC LEUKAEMIA
     Dosage: 16 MG
     Route: 048
     Dates: start: 20190705
  27. TENEX [Concomitant]
     Active Substance: GUANFACINE HYDROCHLORIDE
     Indication: PRODUCT USED FOR UNKNOWN INDICATION
     Dosage: UNK
     Route: 065
     Dates: start: 20190618
  28. RUXOLITINIB [Suspect]
     Active Substance: RUXOLITINIB
     Indication: ACUTE LYMPHOCYTIC LEUKAEMIA
     Dosage: 30 MG, BID
     Route: 048
     Dates: start: 20191014
  29. METHOTREXATE. [Suspect]
     Active Substance: METHOTREXATE
     Dosage: 12 MG, SINGLE
     Route: 037
     Dates: start: 20190802, end: 20190802
  30. NORVASC [Concomitant]
     Active Substance: AMLODIPINE BESYLATE
     Indication: PRODUCT USED FOR UNKNOWN INDICATION
     Dosage: UNK
     Route: 065
     Dates: start: 20190417
  31. CYTARABINE. [Suspect]
     Active Substance: CYTARABINE
     Indication: ACUTE LYMPHOCYTIC LEUKAEMIA
     Dosage: 53 MG, QD
     Route: 042
     Dates: start: 20191014
  32. VINCRISTINE [Suspect]
     Active Substance: VINCRISTINE
     Indication: ACUTE LYMPHOCYTIC LEUKAEMIA
     Dosage: 1.1 MG
     Route: 042
     Dates: start: 20191028
  33. VINCRISTINE [Suspect]
     Active Substance: VINCRISTINE
     Dosage: 1.1 MG
     Route: 042
     Dates: start: 20191028, end: 20191028
  34. DOXORUBICIN [Suspect]
     Active Substance: DOXORUBICIN
     Dosage: 17 MG,
     Route: 042
     Dates: start: 20190906, end: 20190906
  35. METHOTREXATE. [Suspect]
     Active Substance: METHOTREXATE
     Dosage: 12 MG, SINGLE
     Route: 037
     Dates: start: 20190514, end: 20190514
  36. METHOTREXATE. [Suspect]
     Active Substance: METHOTREXATE
     Dosage: 12 MG, SINGLE
     Route: 037
     Dates: start: 20190429, end: 20190429
  37. PEGASPARGASE [Suspect]
     Active Substance: PEGASPARGASE
     Dosage: 1675 IU
     Route: 042
     Dates: start: 20190909, end: 20190909
  38. DOXORUBICIN [Suspect]
     Active Substance: DOXORUBICIN
     Dosage: 17 MG,
     Route: 042
     Dates: start: 20190913, end: 20190913
  39. METHOTREXATE. [Suspect]
     Active Substance: METHOTREXATE
     Dosage: 12 MG, SINGLE
     Route: 037
     Dates: start: 20190906, end: 20190906
  40. CYCLOPHOSPHAMIDE. [Suspect]
     Active Substance: CYCLOPHOSPHAMIDE
     Dosage: 620 MG, SINGLE
     Route: 042
     Dates: start: 20190528, end: 20190528
  41. PEGASPARGASE [Suspect]
     Active Substance: PEGASPARGASE
     Indication: ACUTE LYMPHOCYTIC LEUKAEMIA
     Dosage: 1775 IU
     Route: 042
     Dates: start: 20191028
  42. CYTARABINE. [Suspect]
     Active Substance: CYTARABINE
     Dosage: 45 MG, QD
     Route: 042
     Dates: start: 20190507, end: 20190510
  43. METHOTREXATE. [Suspect]
     Active Substance: METHOTREXATE
     Dosage: 3250 MG, SINGLE
     Route: 042
     Dates: start: 20190802, end: 20190802
  44. METHOTREXATE. [Suspect]
     Active Substance: METHOTREXATE
     Dosage: 12 MG, SINGLE
     Route: 037
     Dates: start: 20190705, end: 20190705
  45. METHOTREXATE. [Suspect]
     Active Substance: METHOTREXATE
     Dosage: 12 MG, SINGLE
     Route: 037
     Dates: start: 20190521, end: 20190521
  46. DECADRON [Suspect]
     Active Substance: DEXAMETHASONE
     Dosage: 3.5 MG, X 7 DAYS
     Route: 048
     Dates: start: 20190906, end: 20190912
  47. MERCAPTOPURINE. [Suspect]
     Active Substance: MERCAPTOPURINE
     Dosage: 36 MG, QD
     Route: 048
     Dates: start: 20190430, end: 20190513

REACTIONS (7)
  - Pancytopenia [Recovered/Resolved]
  - Platelet count decreased [Recovering/Resolving]
  - Pertussis [Recovered/Resolved]
  - Pyrexia [Recovered/Resolved]
  - Anaemia [Recovering/Resolving]
  - Streptococcal infection [Recovered/Resolved]
  - Neutropenia [Recovering/Resolving]

NARRATIVE: CASE EVENT DATE: 20191027
